FAERS Safety Report 18943110 (Version 2)
Quarter: 2021Q2

REPORT INFORMATION
  Report Type: Spontaneous
  Country: US (occurrence: US)
  Receive Date: 20210226
  Receipt Date: 20210412
  Transmission Date: 20210717
  Serious: Yes (Other)
  Sender: FDA-Public Use
  Company Number: US-ROCHE-2777721

PATIENT
  Sex: Male

DRUGS (3)
  1. ESBRIET [Suspect]
     Active Substance: PIRFENIDONE
     Dosage: TAKE 3 TABLET 3 TIMES A DAY WITH MEALS
     Route: 048
  2. ESBRIET [Suspect]
     Active Substance: PIRFENIDONE
     Indication: IDIOPATHIC PULMONARY FIBROSIS
     Dosage: TAKE 1 TABLET 3 TIMES A DAY FOR 1 WEEK
     Route: 048
  3. ESBRIET [Suspect]
     Active Substance: PIRFENIDONE
     Dosage: TAKE 2 TABLET 3 TIMES A DAY FOR 1 WEEK
     Route: 048

REACTIONS (7)
  - Suicidal ideation [Unknown]
  - Flatulence [Unknown]
  - Diarrhoea [Unknown]
  - Abdominal discomfort [Unknown]
  - Chills [Unknown]
  - Headache [Unknown]
  - Swollen tongue [Unknown]
